FAERS Safety Report 19739869 (Version 1)
Quarter: 2021Q3

REPORT INFORMATION
  Report Type: Spontaneous
  Country: PT (occurrence: PT)
  Receive Date: 20210823
  Receipt Date: 20210823
  Transmission Date: 20211014
  Serious: Yes (Hospitalization, Other)
  Sender: FDA-Public Use
  Company Number: PT-AMICI-2021AMILIT00001

PATIENT
  Age: 76 Year
  Sex: Female

DRUGS (8)
  1. THIOCOLCHICOSIDE [Concomitant]
     Active Substance: THIOCOLCHICOSIDE
     Indication: LUMBAR RADICULOPATHY
     Route: 030
  2. ACETAMINOPHEN. [Concomitant]
     Active Substance: ACETAMINOPHEN
     Route: 065
  3. PREDNISOLONE. [Interacting]
     Active Substance: PREDNISOLONE
     Indication: AUTOIMMUNE HAEMOLYTIC ANAEMIA
     Dosage: 1 MG/KG/DAY
     Route: 065
  4. PERINDOPRIL [Concomitant]
     Active Substance: PERINDOPRIL
     Indication: PRODUCT USED FOR UNKNOWN INDICATION
     Route: 065
  5. DICLOFENAC [Suspect]
     Active Substance: DICLOFENAC
     Indication: LUMBAR RADICULOPATHY
     Route: 030
  6. FOLIC ACID. [Interacting]
     Active Substance: FOLIC ACID
     Indication: AUTOIMMUNE HAEMOLYTIC ANAEMIA
     Route: 065
  7. DIAZEPAM. [Concomitant]
     Active Substance: DIAZEPAM
     Route: 065
  8. ROSUVASTATIN. [Concomitant]
     Active Substance: ROSUVASTATIN
     Indication: PRODUCT USED FOR UNKNOWN INDICATION
     Route: 065

REACTIONS (13)
  - Pallor [Recovered/Resolved]
  - Autoimmune haemolytic anaemia [Recovered/Resolved]
  - Diarrhoea [Recovered/Resolved]
  - Nausea [Recovered/Resolved]
  - Jaundice [Recovered/Resolved]
  - Mucosal discolouration [Recovered/Resolved]
  - Hyperbilirubinaemia [Recovered/Resolved]
  - Malaise [Recovered/Resolved]
  - Vomiting [Recovered/Resolved]
  - Reticulocytosis [Recovered/Resolved]
  - Fatigue [Recovered/Resolved]
  - Normochromic normocytic anaemia [Recovered/Resolved]
  - Leukocytosis [Recovered/Resolved]
